FAERS Safety Report 5075074-8 (Version None)
Quarter: 2006Q3

REPORT INFORMATION
  Report Type: 
  Country: None (occurrence: None)
  Receive Date: 20060804
  Receipt Date: 20060727
  Transmission Date: 20061208
  Serious: Yes (Other)
  Sender: FDA-Public Use
  Company Number: 2006092813

PATIENT
  Sex: Male

DRUGS (2)
  1. NEURONTIN [Suspect]
     Indication: HEAD INJURY
  2. NEURONTIN [Suspect]
     Indication: INJURY

REACTIONS (2)
  - DEPRESSION [None]
  - SUICIDAL IDEATION [None]
